FAERS Safety Report 10921188 (Version 1)
Quarter: 2015Q1

REPORT INFORMATION
  Report Type: Spontaneous
  Country: GB (occurrence: GB)
  Receive Date: 20150317
  Receipt Date: 20150317
  Transmission Date: 20150721
  Serious: Yes (Other)
  Sender: FDA-Public Use
  Company Number: GB-BAUSCH-BL-2015-004308

PATIENT
  Age: 43 Year
  Sex: Male

DRUGS (2)
  1. METRONIDAZOLE. [Suspect]
     Active Substance: METRONIDAZOLE
     Indication: NECROTISING ULCERATIVE GINGIVOSTOMATITIS
     Route: 048
     Dates: start: 20150212, end: 20150212
  2. MIRTAZAPINE. [Suspect]
     Active Substance: MIRTAZAPINE
     Indication: DEPRESSION
     Route: 048

REACTIONS (3)
  - Drug interaction [None]
  - Syncope [Recovered/Resolved]
  - Fall [None]

NARRATIVE: CASE EVENT DATE: 20150212
